FAERS Safety Report 14880205 (Version 1)
Quarter: 2018Q2

REPORT INFORMATION
  Report Type: Spontaneous
  Country: US (occurrence: US)
  Receive Date: 20180425
  Receipt Date: 20180425
  Transmission Date: 20180711
  Serious: Yes (Disabling)
  Sender: FDA-Public Use
  Company Number: None

PATIENT
  Age: 66 Year
  Sex: Female
  Weight: 56.25 kg

DRUGS (2)
  1. BOTOX [Suspect]
     Active Substance: ONABOTULINUMTOXINA
     Indication: HEADACHE
     Dosage: ?          QUANTITY:12 INJECTION(S);OTHER FREQUENCY:ONCE;?
     Route: 058
     Dates: start: 20180411, end: 20180411
  2. BOTOX [Suspect]
     Active Substance: ONABOTULINUMTOXINA
     Indication: MIGRAINE
     Dosage: ?          QUANTITY:12 INJECTION(S);OTHER FREQUENCY:ONCE;?
     Route: 058
     Dates: start: 20180411, end: 20180411

REACTIONS (14)
  - Facial pain [None]
  - Neck pain [None]
  - Hypoaesthesia [None]
  - Mobility decreased [None]
  - Vertigo [None]
  - Pain in extremity [None]
  - Headache [None]
  - Injection related reaction [None]
  - Procedural pain [None]
  - Facial spasm [None]
  - Eyelid ptosis [None]
  - Pain [None]
  - Strabismus [None]
  - Musculoskeletal stiffness [None]

NARRATIVE: CASE EVENT DATE: 20180411
